FAERS Safety Report 9786391 (Version 1)
Quarter: 2013Q4

REPORT INFORMATION
  Report Type: Spontaneous
  Country: US (occurrence: US)
  Receive Date: 20131227
  Receipt Date: 20131227
  Transmission Date: 20140711
  Serious: Yes (Other)
  Sender: FDA-Public Use
  Company Number: US-PURDUE-USA-2013-0109830

PATIENT
  Age: 53 Year
  Sex: Male
  Weight: 104.31 kg

DRUGS (2)
  1. DILAUDID TABLET [Suspect]
     Indication: PAIN
     Dosage: 4 MG, TID
     Route: 048
  2. LYRICA [Suspect]
     Indication: PAIN
     Dosage: 150 MG, TID
     Route: 048

REACTIONS (1)
  - Surgery [Unknown]
